FAERS Safety Report 17135196 (Version 1)
Quarter: 2019Q4

REPORT INFORMATION
  Report Type: Report from Study
  Country: DE (occurrence: DE)
  Receive Date: 20191210
  Receipt Date: 20191210
  Transmission Date: 20200122
  Serious: Yes (Hospitalization)
  Sender: FDA-Public Use
  Company Number: PHHY2017DE050867

PATIENT
  Age: 50 Year
  Sex: Female

DRUGS (1)
  1. GILENYA [Suspect]
     Active Substance: FINGOLIMOD HYDROCHLORIDE
     Indication: MULTIPLE SCLEROSIS
     Dosage: UNK, QD
     Route: 048
     Dates: start: 20150326

REACTIONS (14)
  - Nausea [Recovered/Resolved]
  - Nightmare [Unknown]
  - Muscle spasticity [Unknown]
  - Blood cholesterol increased [Unknown]
  - Flatulence [Recovered/Resolved]
  - Carpal tunnel syndrome [Recovered/Resolved]
  - Low density lipoprotein increased [Unknown]
  - Nasopharyngitis [Recovered/Resolved]
  - Dizziness [Recovered/Resolved]
  - Vertigo [Recovered/Resolved]
  - Sciatica [Unknown]
  - Headache [Unknown]
  - Carpal tunnel syndrome [Recovered/Resolved]
  - Insomnia [Unknown]

NARRATIVE: CASE EVENT DATE: 20160601
